FAERS Safety Report 10732937 (Version 2)
Quarter: 2015Q1

REPORT INFORMATION
  Report Type: Spontaneous
  Country: US (occurrence: None)
  Receive Date: 20150120
  Receipt Date: 20150225
  Transmission Date: 20150721
  Serious: Yes (Hospitalization)
  Sender: FDA-Public Use
  Company Number: 2015AP005147

PATIENT
  Age: 10 Year
  Sex: Female
  Weight: 40.2 kg

DRUGS (10)
  1. XOPENEX (LEVOSALBUTAMOL HYDROCHLORIDE) [Concomitant]
  2. SINGULAIR [Concomitant]
     Active Substance: MONTELUKAST SODIUM
  3. FOLIC ACID. [Concomitant]
     Active Substance: FOLIC ACID
  4. FERRIPROX [Suspect]
     Active Substance: DEFERIPRONE
     Indication: SICKLE CELL ANAEMIA
     Route: 048
     Dates: start: 20130523, end: 20141205
  5. DULERA (FORMOTEROL FUMARATE MOMETASONE FUROATE) [Concomitant]
  6. PULMICORT TURBUHALER [Concomitant]
     Active Substance: BUDESONIDE
  7. LAMICTAL [Concomitant]
     Active Substance: LAMOTRIGINE
  8. ASPIRIN. [Concomitant]
     Active Substance: ASPIRIN
  9. PENICILLIN (BENZYLPENICILLIN SODIUM) [Concomitant]
     Active Substance: PENICILLIN G SODIUM
  10. DIASTAT (DIAZEPAM) [Concomitant]

REACTIONS (8)
  - Eye movement disorder [None]
  - Aspartate aminotransferase increased [None]
  - Vision blurred [None]
  - Headache [None]
  - Transient ischaemic attack [None]
  - Hepatic enzyme increased [None]
  - Dizziness [None]
  - Alanine aminotransferase increased [None]

NARRATIVE: CASE EVENT DATE: 20141201
